FAERS Safety Report 5252977-2 (Version None)
Quarter: 2007Q1

REPORT INFORMATION
  Report Type: 
  Country: None (occurrence: None)
  Receive Date: 20070301
  Receipt Date: 20070226
  Transmission Date: 20070707
  Serious: Yes (Death, Other)
  Sender: FDA-Public Use
  Company Number: GB-BRISTOL-MYERS SQUIBB COMPANY-13693841

PATIENT

DRUGS (1)
  1. WARFARIN SODIUM [Suspect]
     Indication: EMBOLISM

REACTIONS (3)
  - DEEP VEIN THROMBOSIS [None]
  - HAEMORRHAGE [None]
  - PULMONARY EMBOLISM [None]
